FAERS Safety Report 14923210 (Version 1)
Quarter: 2018Q2

REPORT INFORMATION
  Report Type: Spontaneous
  Country: FR (occurrence: FR)
  Receive Date: 20180522
  Receipt Date: 20180522
  Transmission Date: 20180711
  Serious: Yes (Other)
  Sender: FDA-Public Use
  Company Number: FR-MERCK KGAA-2048225

PATIENT
  Age: 58 Year
  Sex: Female

DRUGS (1)
  1. NOVOTHYROX [Suspect]
     Active Substance: LEVOTHYROXINE SODIUM
     Indication: AUTOIMMUNE THYROIDITIS

REACTIONS (36)
  - Anger [None]
  - Decreased activity [None]
  - Aspartate aminotransferase increased [None]
  - Headache [None]
  - Hot flush [None]
  - Major depression [None]
  - Alanine aminotransferase increased [None]
  - Hyperhidrosis [None]
  - Fatigue [None]
  - Irritability [None]
  - Cognitive disorder [None]
  - Weight increased [None]
  - Depressed mood [None]
  - Somnolence [None]
  - Mood altered [None]
  - Tremor [None]
  - Gamma-glutamyltransferase increased [None]
  - Sleep disorder [None]
  - Malaise [None]
  - Decreased interest [None]
  - Gait disturbance [None]
  - Madarosis [None]
  - Erythema [None]
  - Muscle spasms [None]
  - Mood swings [None]
  - Amnesia [None]
  - Disturbance in attention [None]
  - Mental disorder [None]
  - Loss of libido [None]
  - Hypersomnia [None]
  - Apathy [None]
  - Confusional state [None]
  - Social avoidant behaviour [None]
  - Temperature intolerance [None]
  - Alopecia [None]
  - Pruritus [None]

NARRATIVE: CASE EVENT DATE: 201704
